FAERS Safety Report 9601736 (Version 1)
Quarter: 2013Q4

REPORT INFORMATION
  Report Type: Spontaneous
  Country: TR (occurrence: None)
  Receive Date: 20131002
  Receipt Date: 20131002
  Transmission Date: 20140711
  Serious: Yes (Hospitalization)
  Sender: FDA-Public Use
  Company Number: ABR_01136_2013

PATIENT
  Age: 31 Year
  Sex: Female

DRUGS (2)
  1. LAMOTRIGINE (LAMOTRIGINE) [Suspect]
     Indication: IDIOPATHIC GENERALISED EPILEPSY
  2. VALPROIC ACID (VALPROIC ACID) [Suspect]
     Indication: IDIOPATHIC GENERALISED EPILEPSY

REACTIONS (3)
  - Convulsion [None]
  - Weight increased [None]
  - Alopecia [None]
